FAERS Safety Report 6340441-9 (Version None)
Quarter: 2009Q3

REPORT INFORMATION
  Report Type: 
  Country: None (occurrence: None)
  Receive Date: 20090904
  Receipt Date: 20090828
  Transmission Date: 20100115
  Serious: Yes (Other)
  Sender: FDA-Public Use
  Company Number: US-TEVA-206172USA

PATIENT
  Sex: Female

DRUGS (2)
  1. CLARAVIS [Suspect]
     Route: 048
     Dates: start: 20090209, end: 20090713
  2. BACTRIM [Concomitant]
     Indication: STAPHYLOCOCCAL INFECTION
     Dosage: DS
     Dates: start: 20090701, end: 20090701

REACTIONS (1)
  - UNINTENDED PREGNANCY [None]
